FAERS Safety Report 24774515 (Version 1)
Quarter: 2024Q4

REPORT INFORMATION
  Report Type: Spontaneous
  Country: US (occurrence: US)
  Receive Date: 20241225
  Receipt Date: 20241225
  Transmission Date: 20250114
  Serious: No
  Sender: ACCORD
  Company Number: US-Accord-390343

PATIENT
  Age: 68 Year
  Sex: Female
  Weight: 83.46 kg

DRUGS (8)
  1. BUPROPION HYDROCHLORIDE [Suspect]
     Active Substance: BUPROPION HYDROCHLORIDE
     Indication: Anxiety
     Dosage: EXTENDED RELEASE TABLETS; 150MG/2 TABLETS/ONCE A DAY
     Route: 065
     Dates: start: 202309
  2. ATORVASTATIN [Concomitant]
     Active Substance: ATORVASTATIN
  3. RIMEGEPANT [Concomitant]
     Active Substance: RIMEGEPANT
  4. BUPROPION HYDROCHLORIDE [Concomitant]
     Active Substance: BUPROPION HYDROCHLORIDE
  5. BUSPIRONE [Concomitant]
     Active Substance: BUSPIRONE HYDROCHLORIDE
  6. CLOZAPINE [Concomitant]
     Active Substance: CLOZAPINE
  7. MIRTAZAPINE [Concomitant]
     Active Substance: MIRTAZAPINE
  8. SEMAGLUTIDE [Concomitant]
     Active Substance: SEMAGLUTIDE

REACTIONS (2)
  - Product residue present [Unknown]
  - Off label use [Unknown]
